FAERS Safety Report 10950787 (Version 2)
Quarter: 2015Q2

REPORT INFORMATION
  Report Type: Spontaneous
  Country: US (occurrence: US)
  Receive Date: 20150324
  Receipt Date: 20150413
  Transmission Date: 20150821
  Serious: Yes (Disabling, Other)
  Sender: FDA-Public Use
  Company Number: US-PFIZER INC-2015099917

PATIENT
  Age: 56 Year
  Sex: Female
  Weight: 109 kg

DRUGS (5)
  1. LAMOTRIGINE. [Concomitant]
     Active Substance: LAMOTRIGINE
     Indication: BIPOLAR DISORDER
     Dosage: UNK
  2. CYMBALTA [Concomitant]
     Active Substance: DULOXETINE HYDROCHLORIDE
     Dosage: 60 MG IN THE AFTERNOON AND 30 MG IN THE MORNING, 2X/DAY
  3. LYRICA [Suspect]
     Active Substance: PREGABALIN
     Indication: FIBROMYALGIA
  4. LYRICA [Suspect]
     Active Substance: PREGABALIN
     Indication: PAIN
     Dosage: 100MG CAPSULE, 2 IN THE MORNING, 1 IN AFTERNOON AND 1 AT NIGHT, 3X/DAY
     Route: 048
     Dates: start: 2011
  5. AMITRIPTYLINE [Concomitant]
     Active Substance: AMITRIPTYLINE
     Dosage: 30 MG, UNK

REACTIONS (6)
  - Ankle fracture [Unknown]
  - Osteoarthritis [Unknown]
  - Therapeutic response unexpected [Unknown]
  - Disease progression [Unknown]
  - Pre-existing condition improved [Unknown]
  - Malaise [Unknown]
